FAERS Safety Report 9896375 (Version 1)
Quarter: 2014Q1

REPORT INFORMATION
  Report Type: Spontaneous
  Country: US (occurrence: US)
  Receive Date: 20140213
  Receipt Date: 20140213
  Transmission Date: 20141002
  Serious: No
  Sender: FDA-Public Use
  Company Number: US-BRISTOL-MYERS SQUIBB COMPANY-19099829

PATIENT
  Age: 38 Year
  Sex: Female

DRUGS (8)
  1. ABATACEPT SUBQ INJECTION 125MG/ML [Suspect]
     Indication: RHEUMATOID ARTHRITIS
     Route: 058
     Dates: start: 201204, end: 201205
  2. SINGULAIR [Concomitant]
  3. METHOTREXATE [Concomitant]
  4. LUNESTA [Concomitant]
  5. DICLOFENAC [Concomitant]
  6. PERCOCET [Concomitant]
  7. KADIAN [Concomitant]
  8. FOLIC ACID [Concomitant]

REACTIONS (1)
  - Trismus [Unknown]
